FAERS Safety Report 10393536 (Version 1)
Quarter: 2014Q3

REPORT INFORMATION
  Report Type: Spontaneous
  Country: IN (occurrence: None)
  Receive Date: 20140815
  Receipt Date: 20140815
  Transmission Date: 20150326
  Serious: Yes (Other)
  Sender: FDA-Public Use
  Company Number: 2014SUP00036

PATIENT
  Age: 16 Month
  Sex: Female

DRUGS (2)
  1. TOPIRAMATE. [Suspect]
     Active Substance: TOPIRAMATE
     Indication: CONVULSION NEONATAL
     Dosage: 37.5MG, 1X/DAY
  2. VALPROATE [Suspect]
     Active Substance: VALPROATE SODIUM
     Indication: CONVULSION NEONATAL
     Dosage: 300MG, 1X/DAY

REACTIONS (7)
  - Drug interaction [None]
  - Dyspnoea [None]
  - Convulsion [None]
  - Amino acid level increased [None]
  - Ammonia increased [None]
  - Hyperaluminaemia [None]
  - Lactate pyruvate ratio abnormal [None]
